FAERS Safety Report 4808401-4 (Version None)
Quarter: 2005Q4

REPORT INFORMATION
  Report Type: 
  Country: None (occurrence: None)
  Receive Date: 20051021
  Receipt Date: 20030820
  Transmission Date: 20060501
  Serious: Yes (Hospitalization)
  Sender: FDA-Public Use
  Company Number: FR_030802828

PATIENT
  Age: 60 Year
  Sex: Male

DRUGS (3)
  1. ZYPREXA [Suspect]
     Indication: SCHIZOTYPAL PERSONALITY DISORDER
     Dosage: 10 MG/DAY
     Dates: start: 20030421, end: 20030512
  2. LEPTICUR (TROPATEPINE HYDROCHLORIDE) [Concomitant]
  3. TERCIAN (CYAMEMAZINE) [Concomitant]

REACTIONS (4)
  - DEPRESSED LEVEL OF CONSCIOUSNESS [None]
  - LEUKOPENIA [None]
  - PYREXIA [None]
  - SPINAL MYELOGRAM ABNORMAL [None]
